FAERS Safety Report 5973618-2 (Version None)
Quarter: 2008Q4

REPORT INFORMATION
  Report Type: 
  Country: None (occurrence: None)
  Receive Date: 20081201
  Receipt Date: 20081124
  Transmission Date: 20090506
  Serious: Yes (Other)
  Sender: FDA-Public Use
  Company Number: US-ELI_LILLY_AND_COMPANY-US200809005124

PATIENT
  Sex: Male
  Weight: 117.91 kg

DRUGS (9)
  1. BYETTA [Suspect]
     Indication: TYPE 2 DIABETES MELLITUS
     Dosage: 5 UG, 2/D
     Route: 058
     Dates: start: 20060901, end: 20061001
  2. BYETTA [Suspect]
     Dosage: 10 UG, 2/D
     Route: 058
     Dates: start: 20061001, end: 20080919
  3. ACTOS [Concomitant]
     Indication: TYPE 2 DIABETES MELLITUS
     Dosage: 15 MG, 2/D
  4. METFORMIN HCL [Concomitant]
     Indication: TYPE 2 DIABETES MELLITUS
     Dosage: 1000 MG, 2/D
  5. AVAPRO [Concomitant]
     Dosage: 150 MG, DAILY (1/D)
  6. CARDIZEM [Concomitant]
     Indication: CARDIAC DISORDER
     Dosage: 180 MG, EACH MORNING
  7. ASPIRIN [Concomitant]
     Indication: CARDIAC DISORDER
     Dosage: 81 MG, EACH MORNING
  8. CRESTOR [Concomitant]
     Indication: BLOOD CHOLESTEROL
     Dosage: 5 MG, EACH MORNING
  9. AMIODARONE HCL [Concomitant]
     Indication: CARDIAC DISORDER
     Dosage: 400 MG, 2/D

REACTIONS (2)
  - ATRIAL FIBRILLATION [None]
  - NAUSEA [None]
